FAERS Safety Report 15854577 (Version 2)
Quarter: 2019Q1

REPORT INFORMATION
  Report Type: Spontaneous
  Country: US (occurrence: US)
  Receive Date: 20190122
  Receipt Date: 20190221
  Transmission Date: 20190417
  Serious: No
  Sender: FDA-Public Use
  Company Number: US-TEVA-2019-US-995088

PATIENT
  Sex: Female

DRUGS (1)
  1. ACTAVIS LIDOCAINE PATCH 5 % [Suspect]
     Active Substance: LIDOCAINE
     Indication: PAIN
     Route: 062
     Dates: start: 201812

REACTIONS (1)
  - Drug ineffective [Unknown]
